FAERS Safety Report 19692201 (Version 2)
Quarter: 2021Q3

REPORT INFORMATION
  Report Type: Report from Study
  Country: CO (occurrence: CO)
  Receive Date: 20210812
  Receipt Date: 20210913
  Transmission Date: 20211014
  Serious: Yes (Hospitalization, Disabling, Other)
  Sender: FDA-Public Use
  Company Number: CO-SA-2021SA109981

PATIENT
  Age: 51 Year
  Sex: Female

DRUGS (1)
  1. TERIFLUNOMIDE. [Suspect]
     Active Substance: TERIFLUNOMIDE
     Indication: MULTIPLE SCLEROSIS
     Dosage: 14 MG, QD
     Route: 048
     Dates: start: 20191228, end: 2021

REACTIONS (16)
  - Skin infection [Unknown]
  - Vomiting [Unknown]
  - Diplopia [Unknown]
  - Asthenia [Unknown]
  - Cardiac assistance device user [Unknown]
  - Skin ulcer [Unknown]
  - Vision blurred [Unknown]
  - Blindness [Unknown]
  - Aspiration [Unknown]
  - Muscle spasms [Unknown]
  - Fatigue [Unknown]
  - Balance disorder [Unknown]
  - Pain in extremity [Unknown]
  - Headache [Unknown]
  - Bladder sphincter atony [Unknown]
  - Multiple sclerosis relapse [Unknown]

NARRATIVE: CASE EVENT DATE: 20210313
